FAERS Safety Report 8986077 (Version 1)
Quarter: 2012Q4

REPORT INFORMATION
  Report Type: Spontaneous
  Country: US (occurrence: None)
  Receive Date: 20120926
  Receipt Date: 20120926
  Transmission Date: 20130627
  Serious: Yes (Hospitalization, Disabling)
  Sender: FDA-Public Use
  Company Number: 2012000116

PATIENT
  Age: 46 Year
  Sex: Female

DRUGS (3)
  1. TRAZODONE [Suspect]
  2. AMITRIPTYLINE [Suspect]
  3. OXYCODONE (OXYCODONE) [Suspect]

REACTIONS (11)
  - Overdose [None]
  - Anoxia [None]
  - Brain injury [None]
  - Unresponsive to stimuli [None]
  - Respiratory rate decreased [None]
  - Miosis [None]
  - Leukoencephalopathy [None]
  - Speech disorder [None]
  - Disorientation [None]
  - Amnesia [None]
  - Cerebral atrophy [None]
